FAERS Safety Report 7636059-8 (Version None)
Quarter: 2011Q3

REPORT INFORMATION
  Report Type: 
  Country: None (occurrence: None)
  Receive Date: 20110726
  Receipt Date: 20110720
  Transmission Date: 20111222
  Serious: Yes (Other)
  Sender: FDA-Public Use
  Company Number: CA-PFIZER INC-2011164630

PATIENT
  Age: 78 Year
  Sex: Female

DRUGS (2)
  1. XALATAN [Suspect]
     Indication: GLAUCOMA
     Dosage: 1 GTT IN BOTH EYES, 1X/DAY AT NIGHT
     Route: 047
  2. TIMOPTIC [Concomitant]
     Indication: GLAUCOMA
     Dosage: 1 GTT IN BOTH EYE IN THE MORNING, 1X/DAY

REACTIONS (2)
  - CATARACT [None]
  - LENTICULAR OPERATION [None]
